FAERS Safety Report 8934960 (Version 2)
Quarter: 2013Q2

REPORT INFORMATION
  Report Type: Spontaneous
  Country: BR (occurrence: BR)
  Receive Date: 20121129
  Receipt Date: 20130605
  Transmission Date: 20140414
  Serious: No
  Sender: FDA-Public Use
  Company Number: BR-BRISTOL-MYERS SQUIBB COMPANY-17152331

PATIENT
  Age: 68 Year
  Sex: Male
  Weight: 100 kg

DRUGS (5)
  1. ONGLYZA TABS 5 MG [Suspect]
     Indication: DIABETES MELLITUS
     Route: 048
  2. GLIFAGE [Suspect]
  3. VITAMIN B1 + B6 [Concomitant]
  4. BENERVA [Concomitant]
  5. HIGROTON [Concomitant]

REACTIONS (1)
  - Weight decreased [Unknown]
